FAERS Safety Report 21406069 (Version 1)
Quarter: 2022Q4

REPORT INFORMATION
  Report Type: Spontaneous
  Country: ES (occurrence: ES)
  Receive Date: 20221004
  Receipt Date: 20221004
  Transmission Date: 20230113
  Serious: Yes (Other)
  Sender: FDA-Public Use
  Company Number: ES-SUN PHARMACEUTICAL INDUSTRIES LTD-2022RR-357432

PATIENT
  Age: 61 Year
  Sex: Male

DRUGS (2)
  1. MORPHINE [Interacting]
     Active Substance: MORPHINE
     Indication: Pain
     Dosage: UNK
     Route: 040
     Dates: start: 20201011, end: 20201011
  2. CLONAZEPAM [Interacting]
     Active Substance: CLONAZEPAM
     Indication: Pain
     Dosage: 0.5 MILLIGRAM, Q4H
     Route: 040
     Dates: start: 20201011, end: 20201011

REACTIONS (2)
  - Depressed level of consciousness [Recovered/Resolved]
  - Inappropriate schedule of product administration [Recovered/Resolved]

NARRATIVE: CASE EVENT DATE: 20201011
